FAERS Safety Report 18566713 (Version 2)
Quarter: 2020Q4

REPORT INFORMATION
  Report Type: Report from Study
  Country: US (occurrence: US)
  Receive Date: 20201201
  Receipt Date: 20201221
  Transmission Date: 20210114
  Serious: Yes (Hospitalization)
  Sender: FDA-Public Use
  Company Number: US-JNJFOC-A-US2017-159975

PATIENT
  Age: 60 Year
  Sex: Female
  Weight: 52.15 kg

DRUGS (10)
  1. UPTRAVI [Suspect]
     Active Substance: SELEXIPAG
     Dosage: 1400 MCG, BID
     Route: 048
  2. UPTRAVI [Suspect]
     Active Substance: SELEXIPAG
     Dosage: UNK
     Route: 048
     Dates: start: 201903
  3. COUMADIN [Concomitant]
     Active Substance: WARFARIN SODIUM
  4. UPTRAVI [Suspect]
     Active Substance: SELEXIPAG
     Dosage: 600 MCG, BID
     Route: 048
  5. UPTRAVI [Suspect]
     Active Substance: SELEXIPAG
     Dosage: 1600 MCG, BID
     Route: 048
     Dates: start: 20180207, end: 20180208
  6. UPTRAVI [Suspect]
     Active Substance: SELEXIPAG
     Dosage: 400 MCG, BID
     Route: 048
  7. UPTRAVI [Suspect]
     Active Substance: SELEXIPAG
     Route: 048
     Dates: start: 20201110
  8. UPTRAVI [Suspect]
     Active Substance: SELEXIPAG
     Indication: PULMONARY ARTERIAL HYPERTENSION
     Dosage: 200 MCG, BID
     Route: 048
     Dates: start: 2018, end: 201903
  9. LETAIRIS [Concomitant]
     Active Substance: AMBRISENTAN
  10. ADCIRCA [Concomitant]
     Active Substance: TADALAFIL

REACTIONS (26)
  - Insomnia [Unknown]
  - Pain [Unknown]
  - Fatigue [Unknown]
  - Cerebral haemorrhage [Unknown]
  - Vomiting [Unknown]
  - Drug intolerance [Unknown]
  - Condition aggravated [Unknown]
  - Migraine [Unknown]
  - Myalgia [Unknown]
  - Brain operation [Unknown]
  - Diarrhoea [Unknown]
  - Chills [Unknown]
  - Pain in jaw [Unknown]
  - Diplopia [Unknown]
  - Nasopharyngitis [Unknown]
  - Pyrexia [Unknown]
  - Emergency care [Unknown]
  - Flushing [Unknown]
  - Nausea [Unknown]
  - Product dose omission issue [Unknown]
  - Amnesia [Unknown]
  - Wrong technique in product usage process [Unknown]
  - Headache [Unknown]
  - Muscle spasms [Unknown]
  - Procedural pain [Unknown]
  - Drug ineffective [Unknown]

NARRATIVE: CASE EVENT DATE: 2019
